FAERS Safety Report 19628282 (Version 2)
Quarter: 2021Q3

REPORT INFORMATION
  Report Type: Spontaneous
  Country: IT (occurrence: IT)
  Receive Date: 20210728
  Receipt Date: 20210904
  Transmission Date: 20211014
  Serious: Yes (Hospitalization, Other)
  Sender: FDA-Public Use
  Company Number: IT-AMGEN-ITASP2021111382

PATIENT
  Age: 9 Year
  Sex: Male

DRUGS (4)
  1. FILGRASTIM [Suspect]
     Active Substance: FILGRASTIM
     Indication: NEUTROPENIA
     Dosage: UNK
     Route: 030
  2. ADALIMUMAB [Suspect]
     Active Substance: ADALIMUMAB
     Indication: INFLAMMATORY BOWEL DISEASE
     Dosage: 40 MILLIGRAM, Q2WK
     Route: 065
  3. CEFIXIME. [Concomitant]
     Active Substance: CEFIXIME
     Dosage: 8 MILLIGRAM/KILOGRAM, QD
     Route: 048
  4. FILGRASTIM [Suspect]
     Active Substance: FILGRASTIM
     Indication: OFF LABEL USE

REACTIONS (12)
  - Blood triglycerides decreased [Unknown]
  - Off label use [Unknown]
  - Red blood cell sedimentation rate increased [Recovered/Resolved]
  - C-reactive protein increased [Recovered/Resolved]
  - Anaemia [Recovered/Resolved]
  - Hyperuricaemia [Unknown]
  - Drug specific antibody present [Unknown]
  - Aphthous ulcer [Unknown]
  - Blood cholesterol decreased [Unknown]
  - Inflammatory bowel disease [Recovered/Resolved]
  - Juvenile idiopathic arthritis [Unknown]
  - Blood urea increased [Unknown]
